FAERS Safety Report 10058004 (Version 1)
Quarter: 2014Q2

REPORT INFORMATION
  Report Type: Spontaneous
  Country: US (occurrence: None)
  Receive Date: 20140403
  Receipt Date: 20140403
  Transmission Date: 20141212
  Serious: Yes (Other)
  Sender: FDA-Public Use
  Company Number: None

PATIENT
  Age: 65 Year
  Sex: Male
  Weight: 88.41 kg

DRUGS (1)
  1. BEVACIZUMAB(RHUMAB VEGF) [Suspect]
     Dates: start: 20131009, end: 20131127

REACTIONS (2)
  - Abdominal pain [None]
  - Proteinuria [None]
